FAERS Safety Report 8075530-4 (Version None)
Quarter: 2012Q1

REPORT INFORMATION
  Report Type: 
  Country: None (occurrence: None)
  Receive Date: 20120127
  Receipt Date: 20120123
  Transmission Date: 20120608
  Serious: Yes (Other)
  Sender: FDA-Public Use
  Company Number: US-PFIZER INC-2012019283

PATIENT
  Sex: Female

DRUGS (4)
  1. CYMBALTA [Suspect]
     Indication: NEUROPATHY PERIPHERAL
     Dosage: UNK
     Dates: start: 20111201
  2. GABAPENTIN [Suspect]
     Indication: NEUROPATHY PERIPHERAL
     Dosage: 600 MG, 3X/DAY
  3. PHENOBARBITAL TAB [Suspect]
     Dosage: UNK
  4. POTASSIUM [Suspect]
     Dosage: UNK

REACTIONS (4)
  - PRURITUS [None]
  - SKIN BURNING SENSATION [None]
  - DRUG INTOLERANCE [None]
  - BURNING SENSATION [None]
